FAERS Safety Report 6271975-3 (Version None)
Quarter: 2009Q3

REPORT INFORMATION
  Report Type: 
  Country: None (occurrence: None)
  Receive Date: 20090715
  Receipt Date: 20090707
  Transmission Date: 20100115
  Serious: Yes (Hospitalization)
  Sender: FDA-Public Use
  Company Number: SPV1-2009-01410

PATIENT
  Age: 54 Year
  Sex: Female
  Weight: 72.6 kg

DRUGS (9)
  1. FOSRENOL [Suspect]
     Indication: BLOOD PHOSPHORUS INCREASED
     Dosage: 1000 MG, 5X/DAY, ORAL
     Route: 048
     Dates: start: 20080601
  2. CLONIDINE [Concomitant]
  3. NEXIUM [Concomitant]
  4. BLOOD PRESSURE PILL [Concomitant]
  5. RENAL VITAMIN [Concomitant]
  6. LASIX [Concomitant]
  7. PREDNISONE TAB [Concomitant]
  8. LUNESTA [Concomitant]
  9. UNKNOWN MEDICATION FOR RESTLESS LEG SYNDROME [Concomitant]

REACTIONS (2)
  - BLOOD IRON DECREASED [None]
  - GASTRIC HAEMORRHAGE [None]
